FAERS Safety Report 9858283 (Version 3)
Quarter: 2016Q2

REPORT INFORMATION
  Report Type: Spontaneous
  Country: US (occurrence: US)
  Receive Date: 20140131
  Receipt Date: 20160527
  Transmission Date: 20160815
  Serious: Yes (Hospitalization, Other)
  Sender: FDA-Public Use
  Company Number: US-ENDO PHARMACEUTICALS INC.-HYDR20130021

PATIENT
  Age: 23 Year
  Sex: Female
  Weight: 71.28 kg

DRUGS (6)
  1. DEXAMETHASONE ELIXIR [Suspect]
     Active Substance: DEXAMETHASONE
     Indication: ADRENAL INSUFFICIENCY
     Route: 065
     Dates: start: 2013
  2. HYDROCORTISONE TABLETS 10MG [Suspect]
     Active Substance: HYDROCORTISONE
     Route: 048
     Dates: start: 2013, end: 201306
  3. FLUDROCORTISONE [Concomitant]
     Active Substance: FLUDROCORTISONE
     Indication: ADRENAL INSUFFICIENCY
     Route: 065
     Dates: start: 2013
  4. HYDROCORTISONE TABLETS 10MG [Suspect]
     Active Substance: HYDROCORTISONE
     Indication: ADRENAL INSUFFICIENCY
     Route: 048
     Dates: start: 2009
  5. HYDROCORTISONE TABLETS 10MG [Suspect]
     Active Substance: HYDROCORTISONE
     Route: 048
     Dates: start: 2008, end: 2008
  6. HYDROCORTISONE TABLETS 10MG [Suspect]
     Active Substance: HYDROCORTISONE
     Route: 048
     Dates: start: 2008, end: 2009

REACTIONS (20)
  - Blindness transient [Recovered/Resolved]
  - Headache [Recovered/Resolved]
  - Adrenocortical insufficiency acute [Recovered/Resolved]
  - Affect lability [Recovered/Resolved]
  - Bone tuberculosis [Recovered/Resolved]
  - Fatigue [Recovered/Resolved]
  - Aphasia [Recovered/Resolved]
  - Presyncope [Recovered/Resolved]
  - Loss of consciousness [Recovered/Resolved]
  - Weight increased [Recovered/Resolved]
  - Hospitalisation [Recovered/Resolved]
  - Visual acuity reduced [Recovered/Resolved]
  - Abasia [Recovered/Resolved]
  - Malaise [Recovered/Resolved]
  - Drug ineffective [Recovered/Resolved]
  - Weight decreased [Recovered/Resolved]
  - Nausea [Recovered/Resolved]
  - Gluten sensitivity [Recovered/Resolved]
  - Withdrawal syndrome [Unknown]
  - Anxiety [Recovered/Resolved]

NARRATIVE: CASE EVENT DATE: 2008
